FAERS Safety Report 23406352 (Version 2)
Quarter: 2024Q1

REPORT INFORMATION
  Report Type: Spontaneous
  Country: US (occurrence: US)
  Receive Date: 20240116
  Receipt Date: 20240304
  Transmission Date: 20240410
  Serious: Yes (Other)
  Sender: FDA-Public Use
  Company Number: US-BAYER-2024A003264

PATIENT
  Age: 46 Year
  Sex: Male

DRUGS (4)
  1. AFRIN ORIGINAL NASAL [Suspect]
     Active Substance: OXYMETAZOLINE HYDROCHLORIDE
     Indication: Sinus disorder
     Dosage: STARTED ABOUT 15 TO 20 YEARS AGO 2-3 SPRAY X 2 X A DAY SOMETIMES MORE THAN THAT
  2. VICTOZA [Concomitant]
     Active Substance: LIRAGLUTIDE
     Indication: Prophylaxis
     Dosage: 1.2MG X 1 A DAY
  3. LISINOPRIL [Concomitant]
     Active Substance: LISINOPRIL
     Indication: Prophylaxis
     Dosage: 5MG X 1 A DAY
     Route: 048
  4. ATORVASTATIN [Concomitant]
     Active Substance: ATORVASTATIN
     Indication: Prophylaxis
     Dosage: 10MG X 1 A DAY
     Route: 048

REACTIONS (4)
  - Drug dependence [Not Recovered/Not Resolved]
  - Incorrect product administration duration [None]
  - Inappropriate schedule of product administration [None]
  - Rebound effect [None]
